FAERS Safety Report 24961045 (Version 1)
Quarter: 2025Q1

REPORT INFORMATION
  Report Type: Spontaneous
  Country: US (occurrence: None)
  Receive Date: 20250211
  Receipt Date: 20250211
  Transmission Date: 20250408
  Serious: Yes (Hospitalization)
  Sender: FDA-CTU
  Company Number: None

PATIENT
  Age: 67 Year
  Sex: Female
  Weight: 54.85 kg

DRUGS (6)
  1. ELRANATAMAB [Suspect]
     Active Substance: ELRANATAMAB
     Indication: Plasma cell myeloma
     Dosage: FREQUENCY : DAILY;?
     Route: 058
     Dates: start: 20240814, end: 20240821
  2. acetaminiophen 650 mg [Concomitant]
     Dates: start: 20240814, end: 20240823
  3. DIPHENHYDRAMINE HYDROCHLORIDE [Concomitant]
     Active Substance: DIPHENHYDRAMINE HYDROCHLORIDE
     Dates: start: 20240814, end: 20240823
  4. dexamethasone 16 mg [Concomitant]
     Dates: start: 20240814, end: 20240823
  5. BACTRIM DS [Concomitant]
     Active Substance: SULFAMETHOXAZOLE\TRIMETHOPRIM
     Dates: start: 20240814, end: 20240823
  6. PREGABALIN [Concomitant]
     Active Substance: PREGABALIN
     Dates: start: 20240814, end: 20240823

REACTIONS (3)
  - Tachycardia [None]
  - Chills [None]
  - Body temperature increased [None]

NARRATIVE: CASE EVENT DATE: 20240816
